FAERS Safety Report 11505463 (Version 1)
Quarter: 2015Q3

REPORT INFORMATION
  Report Type: Spontaneous
  Country: US (occurrence: None)
  Receive Date: 20150914
  Receipt Date: 20150914
  Transmission Date: 20151125
  Serious: Yes (Death)
  Sender: FDA-Public Use
  Company Number: None

PATIENT
  Age: 41 Year
  Sex: Female
  Weight: 81.65 kg

DRUGS (1)
  1. TRANEXAMIC ACID. [Suspect]
     Active Substance: TRANEXAMIC ACID
     Indication: MENORRHAGIA
     Route: 048
     Dates: start: 20120807, end: 20150905

REACTIONS (12)
  - Cardiac arrest [None]
  - Adenomyosis [None]
  - Syncope [None]
  - Diarrhoea [None]
  - Atrial fibrillation [None]
  - Dyspnoea [None]
  - Uterine haemorrhage [None]
  - Chest discomfort [None]
  - Pulmonary embolism [None]
  - Fallopian tube cyst [None]
  - Deep vein thrombosis [None]
  - Thyroid neoplasm [None]

NARRATIVE: CASE EVENT DATE: 20150905
